FAERS Safety Report 4949693-0 (Version None)
Quarter: 2006Q1

REPORT INFORMATION
  Report Type: 
  Country: None (occurrence: None)
  Receive Date: 20060316
  Receipt Date: 20060303
  Transmission Date: 20060701
  Serious: Yes (Disabling)
  Sender: FDA-Public Use
  Company Number: EM2006-0147

PATIENT
  Age: 15 Year
  Sex: Male

DRUGS (15)
  1. TOBI [Suspect]
     Indication: PSEUDOMONAS INFECTION
     Dosage: SEE IMAGE
     Route: 055
  2. TOBI [Suspect]
     Indication: PSEUDOMONAS INFECTION
     Dosage: SEE IMAGE
     Route: 055
  3. TOBI [Suspect]
     Indication: PSEUDOMONAS INFECTION
     Dosage: SEE IMAGE
     Route: 055
  4. TOBRAMYCIN [Suspect]
     Indication: PSEUDOMONAS INFECTION
     Dosage: SEE IMAGE
     Route: 042
  5. TOBRAMYCIN [Suspect]
     Indication: PSEUDOMONAS INFECTION
     Dosage: SEE IMAGE
     Route: 042
  6. TOBRAMYCIN [Suspect]
     Indication: PSEUDOMONAS INFECTION
     Dosage: SEE IMAGE
     Route: 042
  7. TOBRAMYCIN [Suspect]
     Indication: PSEUDOMONAS INFECTION
     Dosage: SEE IMAGE
     Route: 042
  8. TOBRAMYCIN [Suspect]
     Indication: PSEUDOMONAS INFECTION
     Dosage: SEE IMAGE
     Route: 042
  9. TOBRAMYCIN [Suspect]
     Indication: PSEUDOMONAS INFECTION
     Dosage: SEE IMAGE
     Route: 042
  10. CEFTAZIDIME SODIUM [Concomitant]
  11. AMPHOTERICIN B [Concomitant]
  12. PULMOZYME [Concomitant]
  13. VANCOMYCIN [Concomitant]
  14. FUROSEMIDE [Concomitant]
  15. TACROLIMUS (TACROLIMUS) [Concomitant]

REACTIONS (12)
  - ANTIBIOTIC LEVEL ABOVE THERAPEUTIC [None]
  - BLOOD CREATININE INCREASED [None]
  - BLOOD UREA INCREASED [None]
  - COCHLEA IMPLANT [None]
  - DEAFNESS NEUROSENSORY [None]
  - LIVER TRANSPLANT [None]
  - MALNUTRITION [None]
  - POST PROCEDURAL COMPLICATION [None]
  - PSEUDOMONAS INFECTION [None]
  - PULMONARY HAEMORRHAGE [None]
  - PURULENT DISCHARGE [None]
  - TRACHEAL INJURY [None]
